FAERS Safety Report 8596481-2 (Version None)
Quarter: 2012Q3

REPORT INFORMATION
  Report Type: 
  Country: None (occurrence: None)
  Receive Date: 20120815
  Receipt Date: 20120807
  Transmission Date: 20120928
  Serious: No
  Sender: FDA-Public Use
  Company Number: US-ASTRAZENECA-2012SE55716

PATIENT
  Age: 31 Year
  Sex: Female

DRUGS (3)
  1. ENTOCORT EC [Suspect]
     Route: 048
  2. HUMIRA [Suspect]
  3. ENTOCORT EC [Suspect]
     Route: 048
     Dates: start: 20120701

REACTIONS (1)
  - PANIC ATTACK [None]
